FAERS Safety Report 6716346-8 (Version None)
Quarter: 2010Q2

REPORT INFORMATION
  Report Type: 
  Country: None (occurrence: None)
  Receive Date: 20100507
  Receipt Date: 20100426
  Transmission Date: 20101027
  Serious: Yes (Hospitalization)
  Sender: FDA-Public Use
  Company Number: SE-B.I. PHARMACEUTICALS,INC./RIDGEFIELD-2010-SW-00112SW

PATIENT
  Age: 60 Year
  Sex: Female

DRUGS (4)
  1. SIFROL TAB. 0.18 MG [Suspect]
     Indication: RESTLESS LEGS SYNDROME
     Dosage: 0.18 MG
  2. SIFROL TAB. 0.18 MG [Suspect]
     Dosage: 0.27 MG
  3. LEVOTHYROXINE SODIUM [Concomitant]
     Indication: GOITRE
     Dosage: 125 MCG
  4. ISOPTIN [Concomitant]
     Indication: HEART RATE
     Dosage: 120 MG

REACTIONS (2)
  - SLEEP DISORDER [None]
  - TREMOR [None]
